FAERS Safety Report 18202987 (Version 4)
Quarter: 2020Q3

REPORT INFORMATION
  Report Type: Spontaneous
  Country: CL (occurrence: CL)
  Receive Date: 20200827
  Receipt Date: 20200922
  Transmission Date: 20201103
  Serious: Yes (Death, Hospitalization)
  Sender: FDA-Public Use
  Company Number: NVSC2020CL236674

PATIENT
  Age: 52 Year
  Sex: Female

DRUGS (1)
  1. GLIVEC [Suspect]
     Active Substance: IMATINIB MESYLATE
     Indication: GASTROINTESTINAL STROMAL TUMOUR
     Dosage: 1 DF, (1 X 400 MG TABLET)
     Route: 048
     Dates: start: 202005, end: 202007

REACTIONS (6)
  - Depression [Fatal]
  - Eating disorder [Fatal]
  - Sepsis [Fatal]
  - Diabetic ketoacidosis [Fatal]
  - Diabetic metabolic decompensation [Fatal]
  - Abdominal pain [Fatal]

NARRATIVE: CASE EVENT DATE: 20200710
